FAERS Safety Report 5124765-9 (Version None)
Quarter: 2006Q4

REPORT INFORMATION
  Report Type: 
  Country: None (occurrence: None)
  Receive Date: 20061011
  Receipt Date: 20060908
  Transmission Date: 20070319
  Serious: Yes (Other)
  Sender: FDA-Public Use
  Company Number: PHNU2006DE03061

PATIENT
  Age: 57 Year
  Sex: Male
  Weight: 53 kg

DRUGS (4)
  1. LEPONEX [Suspect]
     Indication: SCHIZOPHRENIA
     Dosage: 400 MG/DAY
     Route: 048
     Dates: start: 20030601, end: 20060713
  2. DIAZEPAM [Concomitant]
     Dosage: 16 MG/DAY
  3. COLECALCIFEROL [Concomitant]
     Indication: HYPERPARATHYROIDISM SECONDARY
     Dosage: 6000 IU/DAY
  4. LACTUFLOR [Concomitant]
     Dosage: 20 ML/DAY

REACTIONS (7)
  - ANAEMIA [None]
  - BLOOD CALCIUM DECREASED [None]
  - LEUKOPENIA [None]
  - MYELODYSPLASTIC SYNDROME [None]
  - PLATELET COUNT INCREASED [None]
  - RED BLOOD CELL COUNT DECREASED [None]
  - THROMBOCYTOPENIA [None]
